FAERS Safety Report 5009005-3 (Version None)
Quarter: 2006Q2

REPORT INFORMATION
  Report Type: 
  Country: None (occurrence: None)
  Receive Date: 20060519
  Receipt Date: 20060509
  Transmission Date: 20061013
  Serious: Yes (Hospitalization, Other)
  Sender: FDA-Public Use
  Company Number: 2006AL001171

PATIENT
  Age: 10 Month
  Sex: Female

DRUGS (1)
  1. CITALOPRAM HYDROBROMIDE [Suspect]
     Dosage: PO
     Route: 048

REACTIONS (3)
  - ACCIDENTAL OVERDOSE [None]
  - GRAND MAL CONVULSION [None]
  - NYSTAGMUS [None]
